FAERS Safety Report 5256141-2 (Version None)
Quarter: 2007Q1

REPORT INFORMATION
  Report Type: 
  Country: None (occurrence: None)
  Receive Date: 20070306
  Receipt Date: 20070225
  Transmission Date: 20070707
  Serious: Yes (Hospitalization)
  Sender: FDA-Public Use
  Company Number: GB-BRISTOL-MYERS SQUIBB COMPANY-13177274

PATIENT
  Age: 31 Year
  Sex: Female

DRUGS (15)
  1. EFAVIRENZ [Suspect]
     Indication: HIV INFECTION
  2. DIDANOSINE [Suspect]
     Indication: HIV INFECTION
  3. NEVIRAPINE [Suspect]
     Indication: HIV INFECTION
  4. ZIDOVUDINE [Suspect]
     Indication: HIV INFECTION
  5. LAMIVUDINE [Suspect]
     Indication: HIV INFECTION
  6. TENOFOVIR DISOPROXIL FUMARATE [Suspect]
     Indication: HIV INFECTION
  7. CO-TRIMOXAZOLE [Concomitant]
  8. LOPINAVIR [Concomitant]
     Indication: HIV INFECTION
  9. CIDOFOVIR [Concomitant]
  10. RIFAMPICIN [Concomitant]
  11. ISONIAZID [Concomitant]
  12. PYRAZINAMIDE [Concomitant]
  13. ETHAMBUTOL HYDROCHLORIDE [Concomitant]
  14. PYRIDOXINE HCL [Concomitant]
  15. METHYLPREDNISOLONE 16MG TAB [Concomitant]

REACTIONS (18)
  - APRAXIA [None]
  - AREFLEXIA [None]
  - BLOOD VISCOSITY INCREASED [None]
  - COORDINATION ABNORMAL [None]
  - DEPRESSED MOOD [None]
  - DYSARTHRIA [None]
  - FALL [None]
  - FATIGUE [None]
  - GAZE PALSY [None]
  - HEADACHE [None]
  - IMMUNE RECONSTITUTION SYNDROME [None]
  - MENTAL DISORDER [None]
  - NAUSEA [None]
  - PARALYSIS [None]
  - SOMNOLENCE [None]
  - TUBERCULOSIS [None]
  - UPPER MOTOR NEURONE LESION [None]
  - VOMITING [None]
